FAERS Safety Report 10211551 (Version 2)
Quarter: 2014Q2

REPORT INFORMATION
  Report Type: Spontaneous
  Country: US (occurrence: US)
  Receive Date: 20140602
  Receipt Date: 20140617
  Transmission Date: 20141212
  Serious: No
  Sender: FDA-Public Use
  Company Number: US-PFIZER INC-2014150545

PATIENT
  Age: 53 Year
  Sex: Female
  Weight: 72.6 kg

DRUGS (2)
  1. LYRICA [Suspect]
     Indication: NEURALGIA
     Dosage: 75 MG, AS NEEDED
     Dates: end: 201405
  2. MELOXICAM [Concomitant]
     Indication: ARTHRITIS
     Dosage: 15 MG, AS NEEDED

REACTIONS (1)
  - Pain [Not Recovered/Not Resolved]
